FAERS Safety Report 8443718-6 (Version None)
Quarter: 2012Q2

REPORT INFORMATION
  Report Type: 
  Country: None (occurrence: None)
  Receive Date: 20120608
  Receipt Date: 20120528
  Transmission Date: 20120825
  Serious: Yes (Other)
  Sender: FDA-Public Use
  Company Number: DSA_57646_2012

PATIENT

DRUGS (5)
  1. OXALIPLATIN [Suspect]
     Indication: COLORECTAL CANCER METASTATIC
     Dosage: (85 MG/M2)
  2. FLUOROURACIL [Suspect]
     Indication: COLORECTAL CANCER METASTATIC
     Dosage: 1200 MG/M2 DAY FOR 2 CONTINUOUS DAYS,
  3. LEUCOVORIN (NOT SPECIFIED) [Suspect]
     Indication: COLORECTAL CANCER METASTATIC
     Dosage: (400 MG/M2)
  4. BEVACIZUMAB [Suspect]
     Indication: COLORECTAL CANCER METASTATIC
     Dosage: (5 MG/KG)
  5. FLUOROURACIL [Suspect]
     Indication: COLORECTAL CANCER METASTATIC
     Dosage: (400 MG/M2 INTRAVENOUS BOLUS
     Route: 040

REACTIONS (1)
  - NEUTROPENIA [None]
